FAERS Safety Report 23467781 (Version 4)
Quarter: 2024Q1

REPORT INFORMATION
  Report Type: Spontaneous
  Country: US (occurrence: US)
  Receive Date: 20240201
  Receipt Date: 20240308
  Transmission Date: 20240410
  Serious: Yes (Other)
  Sender: FDA-Public Use
  Company Number: US-PFIZER INC-202400030333

PATIENT
  Age: 65 Year
  Sex: Male

DRUGS (3)
  1. VELSIPITY [Suspect]
     Active Substance: ETRASIMOD ARGININE
     Dosage: 2 MG TAKE 1 TABLET BY MOUTH, ONCE A DAY, WITH OR WITHOUT FOOD, SWALLOW TABLET WHOLE
     Route: 048
  2. DOXYCYCLINE [Concomitant]
     Active Substance: DOXYCYCLINE
     Dosage: UNK
  3. CEFDINIR [Concomitant]
     Active Substance: CEFDINIR
     Dosage: UNK

REACTIONS (6)
  - Proctitis ulcerative [Unknown]
  - Gastrooesophageal reflux disease [Unknown]
  - Dyspepsia [Unknown]
  - Eructation [Unknown]
  - Liver disorder [Unknown]
  - Renal cyst [Unknown]
